FAERS Safety Report 23577047 (Version 2)
Quarter: 2024Q1

REPORT INFORMATION
  Report Type: Spontaneous
  Country: US (occurrence: US)
  Receive Date: 20240228
  Receipt Date: 20240304
  Transmission Date: 20240410
  Serious: No
  Sender: FDA-Public Use
  Company Number: US-TRAVERE-2024TVT00178

PATIENT
  Age: 41 Year
  Sex: Male

DRUGS (2)
  1. FILSPARI [Suspect]
     Active Substance: SPARSENTAN
     Indication: IgA nephropathy
     Route: 048
  2. FILSPARI [Suspect]
     Active Substance: SPARSENTAN
     Route: 048
     Dates: start: 20240216

REACTIONS (4)
  - Diarrhoea [Unknown]
  - Oropharyngeal pain [Unknown]
  - Productive cough [None]
  - Nasopharyngitis [Unknown]

NARRATIVE: CASE EVENT DATE: 20240216
